FAERS Safety Report 7489518-5 (Version None)
Quarter: 2011Q2

REPORT INFORMATION
  Report Type: 
  Country: None (occurrence: None)
  Receive Date: 20110519
  Receipt Date: 20110511
  Transmission Date: 20111010
  Serious: Yes (Other)
  Sender: FDA-Public Use
  Company Number: US-BRISTOL-MYERS SQUIBB COMPANY-15737208

PATIENT
  Age: 62 Year
  Sex: Male
  Weight: 95 kg

DRUGS (7)
  1. AVALIDE [Suspect]
     Indication: HYPERTENSION
     Dosage: 1 DF = 300/12.5MG
     Dates: start: 20050101
  2. LOVAZA [Suspect]
  3. DICLOFENAC SODIUM [Concomitant]
     Indication: ARTHRITIS
  4. CRESTOR [Concomitant]
     Indication: BLOOD CHOLESTEROL
  5. OMEPRAZOLE [Concomitant]
     Indication: GASTROOESOPHAGEAL REFLUX DISEASE
  6. NIACIN [Suspect]
  7. METFORMIN HCL [Concomitant]
     Indication: DIABETES MELLITUS

REACTIONS (3)
  - FLATULENCE [None]
  - SKIN CANCER [None]
  - PROSTATE CANCER [None]
